FAERS Safety Report 6882552-5 (Version None)
Quarter: 2010Q3

REPORT INFORMATION
  Report Type: 
  Country: None (occurrence: None)
  Receive Date: 20100729
  Receipt Date: 20091209
  Transmission Date: 20110219
  Serious: No
  Sender: FDA-Public Use
  Company Number: US-MYLANLABS-2009S1021193

PATIENT
  Age: 67 Year
  Sex: Female

DRUGS (4)
  1. ZOLPIDEM TARTRATE [Suspect]
     Indication: INSOMNIA
     Route: 048
     Dates: start: 20090701, end: 20090801
  2. ZOLPIDEM [Suspect]
     Indication: INSOMNIA
     Dates: start: 20090701, end: 20090801
  3. CLONAZEPAM [Suspect]
     Indication: ANXIETY
     Route: 048
     Dates: start: 20090801
  4. MIRTAZAPINE [Suspect]
     Indication: INSOMNIA
     Route: 048
     Dates: start: 20090801

REACTIONS (2)
  - FATIGUE [None]
  - THERAPEUTIC RESPONSE UNEXPECTED [None]
